FAERS Safety Report 8953687 (Version 2)
Quarter: 2012Q4

REPORT INFORMATION
  Report Type: 
  Country: JP (occurrence: JP)
  Receive Date: 20121206
  Receipt Date: 20121228
  Transmission Date: 20130627
  Serious: Yes (Hospitalization)
  Sender: FDA-Public Use
  Company Number: JP-NAPPMUNDI-GBR-2012-0012239

PATIENT
  Age: 87 Year
  Sex: Female

DRUGS (5)
  1. BUPRENORPHINE TRANSDERMAL SYSTEM [Suspect]
     Indication: PROCEDURAL PAIN
     Dosage: 20 mcg, q1h
     Route: 062
     Dates: start: 20121010, end: 20121024
  2. BUPRENORPHINE TRANSDERMAL SYSTEM [Suspect]
     Dosage: 10 mcg, q1h
     Route: 062
     Dates: start: 20121003
  3. BUPRENORPHINE TRANSDERMAL SYSTEM [Suspect]
     Dosage: 5 mcg, q1h
     Route: 062
     Dates: start: 20120926
  4. ADOAIR [Concomitant]
     Indication: ASTHMA
     Dosage: 2 tiimes daily
     Route: 055
  5. ROHYPNOL [Concomitant]
     Indication: INSOMNIA
     Dosage: 2 mg, daily
     Route: 048

REACTIONS (4)
  - Generalised erythema [Recovering/Resolving]
  - Erythema [Recovering/Resolving]
  - Pyrexia [Recovering/Resolving]
  - Malaise [Recovering/Resolving]
